FAERS Safety Report 20453161 (Version 2)
Quarter: 2022Q1

REPORT INFORMATION
  Report Type: Spontaneous
  Country: US (occurrence: US)
  Receive Date: 20220210
  Receipt Date: 20220316
  Transmission Date: 20220423
  Serious: No
  Sender: FDA-Public Use
  Company Number: US-GLAXOSMITHKLINE-USCH2022004541

PATIENT
  Age: 63 Year
  Sex: Female

DRUGS (4)
  1. ABREVA [Suspect]
     Active Substance: DOCOSANOL
     Indication: Oral herpes
     Dosage: UNK
     Dates: start: 20211215, end: 20211220
  2. ABREVA [Suspect]
     Active Substance: DOCOSANOL
     Indication: Aphthous ulcer
  3. ABREVA [Suspect]
     Active Substance: DOCOSANOL
     Indication: Oral herpes
     Dosage: UNK
  4. ABREVA [Suspect]
     Active Substance: DOCOSANOL
     Indication: Aphthous ulcer

REACTIONS (5)
  - Wrong technique in product usage process [Recovered/Resolved]
  - Incorrect product administration duration [Unknown]
  - Product use in unapproved indication [Unknown]
  - Expired product administered [Unknown]
  - Product complaint [Unknown]
